FAERS Safety Report 9284954 (Version 2)
Quarter: 2013Q3

REPORT INFORMATION
  Report Type: Report from Study
  Country: MX (occurrence: MX)
  Receive Date: 20130513
  Receipt Date: 20130910
  Transmission Date: 20140515
  Serious: Yes (Other)
  Sender: FDA-Public Use
  Company Number: PHHY2013MX046593

PATIENT
  Age: 55 Year
  Sex: Female

DRUGS (4)
  1. GALVUS MET [Suspect]
     Indication: BLOOD GLUCOSE
     Dosage: 1 DF (1 TABLET BEFORE BREAKFAST AND THE OTHER BEFORE EATING) 500 MG METF/50 MG VILDA) QD
     Dates: start: 2001
  2. DIOVAN [Suspect]
     Indication: HYPERTENSION
     Dosage: 1 DF, QD
     Route: 048
     Dates: start: 201204, end: 201304
  3. FOLIC ACID [Concomitant]
     Indication: BONE DISORDER
     Dosage: 1 DF, UNK
     Dates: start: 201302
  4. NEUROBION                          /00091901/ [Concomitant]
     Dosage: 1 DF, DAILY
     Dates: start: 201004

REACTIONS (7)
  - Nephrocalcinosis [Not Recovered/Not Resolved]
  - Renal aplasia [Not Recovered/Not Resolved]
  - Blood pressure increased [Not Recovered/Not Resolved]
  - Glucose urine present [Not Recovered/Not Resolved]
  - Blood cholesterol increased [Not Recovered/Not Resolved]
  - Blood triglycerides increased [Not Recovered/Not Resolved]
  - Blood pressure inadequately controlled [Unknown]
